FAERS Safety Report 10966813 (Version 1)
Quarter: 2015Q1

REPORT INFORMATION
  Report Type: Spontaneous
  Country: US (occurrence: None)
  Receive Date: 20150226
  Receipt Date: 20150226
  Transmission Date: 20150721
  Serious: No
  Sender: FDA-Public Use
  Company Number: TPA2010A02737

PATIENT
  Age: 62 Year
  Sex: Male

DRUGS (1)
  1. ULORIC [Suspect]
     Active Substance: FEBUXOSTAT
     Dosage: 1 IN 1 D
     Route: 048
     Dates: start: 201003, end: 20100504

REACTIONS (8)
  - Discomfort [None]
  - Pain in extremity [None]
  - Cough [None]
  - Muscle spasms [None]
  - Hypoaesthesia [None]
  - Joint stiffness [None]
  - Vomiting [None]
  - Burning sensation [None]

NARRATIVE: CASE EVENT DATE: 2010
